FAERS Safety Report 5866163-6 (Version None)
Quarter: 2008Q3

REPORT INFORMATION
  Report Type: 
  Country: None (occurrence: None)
  Receive Date: 20080829
  Receipt Date: 20080818
  Transmission Date: 20090109
  Serious: Yes (Death, Life-Threatening, Hospitalization)
  Sender: FDA-Public Use
  Company Number: PL-MERCK-0808POL00011

PATIENT
  Age: 35 Year
  Sex: Male

DRUGS (3)
  1. PRIMAXIN [Suspect]
     Route: 041
  2. TOBRAMYCIN [Concomitant]
     Route: 065
  3. SULFAMERAZINE AND TRIMETHOPRIM [Concomitant]
     Route: 065

REACTIONS (4)
  - DRUG RESISTANCE [None]
  - PNEUMONIA [None]
  - RESPIRATORY FAILURE [None]
  - SEPTIC SHOCK [None]
